FAERS Safety Report 7549495-5 (Version None)
Quarter: 2011Q2

REPORT INFORMATION
  Report Type: 
  Country: None (occurrence: None)
  Receive Date: 20110615
  Receipt Date: 20041126
  Transmission Date: 20111010
  Serious: Yes (Other)
  Sender: FDA-Public Use
  Company Number: PHFR2004GB04233

PATIENT
  Sex: Female

DRUGS (6)
  1. ATORVASTATIN [Concomitant]
     Dosage: 20 MG, QD
  2. VALPROATE SODIUM [Concomitant]
     Dosage: 100 MG, BID
  3. FERROUS SULFATE TAB [Concomitant]
     Dosage: 200 MG, QD
  4. PIRITON [Concomitant]
     Dosage: 4 MG, QD
  5. CLOZAPINE [Suspect]
     Indication: SCHIZOPHRENIA
     Dosage: 400 MG, QD
     Route: 048
     Dates: start: 19990816
  6. ASPIRIN [Concomitant]
     Dosage: 75 MG, QD

REACTIONS (3)
  - RENAL DISORDER [None]
  - HYPERTENSION [None]
  - BLOOD CREATININE INCREASED [None]
